FAERS Safety Report 13645881 (Version 2)
Quarter: 2017Q3

REPORT INFORMATION
  Report Type: Report from Study
  Country: US (occurrence: US)
  Receive Date: 20170613
  Receipt Date: 20170730
  Transmission Date: 20171127
  Serious: Yes (Hospitalization, Other)
  Sender: FDA-Public Use
  Company Number: US-AMGEN-USASL2017087919

PATIENT
  Age: 62 Year
  Sex: Female

DRUGS (1)
  1. ENBREL [Suspect]
     Active Substance: ETANERCEPT
     Indication: RHEUMATOID ARTHRITIS
     Dosage: 50 MG, QWK
     Route: 065

REACTIONS (14)
  - Hallucination [Unknown]
  - Psychotic disorder [Unknown]
  - Disorientation [Unknown]
  - Oxygen saturation decreased [Unknown]
  - Decreased appetite [Unknown]
  - Diarrhoea [Unknown]
  - Depressed mood [Unknown]
  - Circadian rhythm sleep disorder [Unknown]
  - Rheumatoid arthritis [Not Recovered/Not Resolved]
  - Faeces discoloured [Unknown]
  - Chronic obstructive pulmonary disease [Not Recovered/Not Resolved]
  - Dehydration [Unknown]
  - Underdose [Unknown]
  - Drug dose omission [Unknown]

NARRATIVE: CASE EVENT DATE: 2017
